FAERS Safety Report 15499987 (Version 1)
Quarter: 2018Q4

REPORT INFORMATION
  Report Type: Spontaneous
  Country: US (occurrence: US)
  Receive Date: 20181015
  Receipt Date: 20181015
  Transmission Date: 20190205
  Serious: No
  Sender: FDA-Public Use
  Company Number: US-UNIQUE PHARMACEUTICAL LABORATORIES-2017RIS00327

PATIENT
  Sex: Female
  Weight: 56.69 kg

DRUGS (3)
  1. UNSPECIFED CHOLESTEROL MEDICATION [Concomitant]
     Indication: BLOOD CHOLESTEROL ABNORMAL
  2. CETIRIZINE HYDROCHLORIDE. [Suspect]
     Active Substance: CETIRIZINE HYDROCHLORIDE
     Dosage: 10 MG, ONCE
     Dates: start: 20171022
  3. LORATADINE (FROM KAISER PHARMACY) [Suspect]
     Active Substance: LORATADINE

REACTIONS (4)
  - Dry mouth [Not Recovered/Not Resolved]
  - Off label use [None]
  - Somnolence [Recovered/Resolved]
  - Hypersensitivity [Unknown]
